FAERS Safety Report 10159388 (Version 4)
Quarter: 2014Q3

REPORT INFORMATION
  Report Type: Spontaneous
  Country: ZA (occurrence: ZA)
  Receive Date: 20140508
  Receipt Date: 20140912
  Transmission Date: 20150326
  Serious: Yes (Hospitalization, Other)
  Sender: FDA-Public Use
  Company Number: ZA-RANBAXY-2014R5-80750

PATIENT
  Sex: Female

DRUGS (1)
  1. BETAROXIME T [Suspect]
     Active Substance: CEFUROXIME
     Indication: BACTERIAL INFECTION
     Dosage: UNK
     Route: 065

REACTIONS (5)
  - Haematemesis [Unknown]
  - Nausea [Recovered/Resolved]
  - Expired product administered [Unknown]
  - Epistaxis [Unknown]
  - Exposure during pregnancy [Recovered/Resolved]
